FAERS Safety Report 5895972-2 (Version None)
Quarter: 2008Q3

REPORT INFORMATION
  Report Type: 
  Country: None (occurrence: None)
  Receive Date: 20080924
  Receipt Date: 20080918
  Transmission Date: 20090109
  Serious: Yes (Disabling)
  Sender: FDA-Public Use
  Company Number: BR-ASTRAZENECA-2008UW19842

PATIENT
  Age: 42 Year
  Sex: Female
  Weight: 72 kg

DRUGS (1)
  1. ZOLADEX [Suspect]
     Indication: ENDOMETRIOSIS
     Route: 058
     Dates: start: 20050101, end: 20050101

REACTIONS (4)
  - OSTEOARTHRITIS [None]
  - OSTEOPOROSIS [None]
  - SCOLIOSIS [None]
  - WEIGHT INCREASED [None]
